FAERS Safety Report 21504760 (Version 5)
Quarter: 2024Q4

REPORT INFORMATION
  Report Type: Report from Study
  Country: JP (occurrence: JP)
  Receive Date: 20221025
  Receipt Date: 20241218
  Transmission Date: 20250114
  Serious: Yes (Other)
  Sender: ROCHE
  Company Number: JP-CHUGAI-2022041339

PATIENT
  Age: 72 Year
  Sex: Female
  Weight: 50.2 kg

DRUGS (3)
  1. TECENTRIQ [Suspect]
     Active Substance: ATEZOLIZUMAB
     Indication: Triple negative breast cancer
     Dosage: 840 MILLIGRAM
     Route: 065
     Dates: start: 20220826
  2. PACLITAXEL [Suspect]
     Active Substance: PACLITAXEL
     Indication: Triple negative breast cancer
     Dosage: 100 MILLIGRAM/SQ. METER
     Route: 065
     Dates: start: 20220826, end: 20221117
  3. PACLITAXEL [Suspect]
     Active Substance: PACLITAXEL
     Dosage: 75 MILLIGRAM/SQ. METER
     Route: 065
     Dates: start: 20221215, end: 20230610

REACTIONS (29)
  - Neutropenia [Recovered/Resolved]
  - White blood cell count decreased [Recovered/Resolved]
  - Oral pain [Recovered/Resolved]
  - Oral pain [Recovered/Resolved]
  - Nail discolouration [Recovered/Resolved]
  - Onychomadesis [Recovered/Resolved]
  - Oropharyngeal pain [Recovered/Resolved]
  - Abdominal pain [Recovered/Resolved]
  - Headache [Recovered/Resolved]
  - Neuropathy peripheral [Recovered/Resolved]
  - Neuropathy peripheral [Recovering/Resolving]
  - Malaise [Recovered/Resolved]
  - Malaise [Recovered/Resolved]
  - Localised oedema [Recovered/Resolved]
  - Decreased appetite [Recovered/Resolved]
  - Anaemia [Recovered/Resolved]
  - Abdominal pain upper [Recovered/Resolved]
  - Dysgeusia [Recovering/Resolving]
  - Rhinitis allergic [Recovered/Resolved]
  - Rhinitis allergic [Not Recovered/Not Resolved]
  - Nausea [Recovered/Resolved]
  - Cough [Recovered/Resolved]
  - Stomatitis [Recovered/Resolved]
  - Hypothyroidism [Recovered/Resolved]
  - Fatigue [Recovering/Resolving]
  - Pain [Recovered/Resolved]
  - Upper respiratory tract infection [Recovered/Resolved]
  - Back pain [Recovered/Resolved]
  - Neutrophil count decreased [Recovered/Resolved]

NARRATIVE: CASE EVENT DATE: 20220826
